FAERS Safety Report 22174058 (Version 1)
Quarter: 2023Q2

REPORT INFORMATION
  Report Type: Spontaneous
  Country: IL (occurrence: IL)
  Receive Date: 20230405
  Receipt Date: 20230405
  Transmission Date: 20230721
  Serious: Yes (Life-Threatening, Other)
  Sender: FDA-Public Use
  Company Number: None

PATIENT
  Sex: Female

DRUGS (4)
  1. SAXENDA [Suspect]
     Active Substance: LIRAGLUTIDE
     Dosage: UNK(DOSE INCREASE)
  2. SAXENDA [Suspect]
     Active Substance: LIRAGLUTIDE
     Indication: Product used for unknown indication
     Dosage: 1.8 MG
     Dates: start: 20221225
  3. PRIZMA [FLUOXETINE HYDROCHLORIDE] [Concomitant]
     Indication: Anxiety
  4. PRIZMA [FLUOXETINE HYDROCHLORIDE] [Concomitant]
     Indication: Depression
     Dosage: 20MG

REACTIONS (3)
  - Depression [Unknown]
  - Anxiety [Unknown]
  - Suicidal ideation [Unknown]
